FAERS Safety Report 8209151-7 (Version None)
Quarter: 2012Q1

REPORT INFORMATION
  Report Type: 
  Country: None (occurrence: None)
  Receive Date: 20120314
  Receipt Date: 20120306
  Transmission Date: 20120608
  Serious: Yes (Hospitalization)
  Sender: FDA-Public Use
  Company Number: US-BAYER-2011-086008

PATIENT
  Age: 21 Year
  Sex: Female
  Weight: 78.005 kg

DRUGS (3)
  1. CLOMID [Concomitant]
     Dosage: UNK
     Dates: start: 20090101
  2. YASMIN [Suspect]
     Indication: MENSTRUAL CYCLE MANAGEMENT
     Dosage: UNK
     Dates: start: 20090201, end: 20100101
  3. YAZ [Suspect]
     Indication: MENSTRUAL CYCLE MANAGEMENT
     Dosage: UNK
     Dates: start: 20090201, end: 20100101

REACTIONS (3)
  - CHOLECYSTECTOMY [None]
  - INJURY [None]
  - PAIN [None]
